FAERS Safety Report 11117291 (Version 1)
Quarter: 2015Q2

REPORT INFORMATION
  Report Type: Report from Study
  Country: US (occurrence: US)
  Receive Date: 20150515
  Receipt Date: 20150515
  Transmission Date: 20150821
  Serious: Yes (Hospitalization)
  Sender: FDA-Public Use
  Company Number: US-AMGEN-USASP2015042608

PATIENT
  Age: 64 Year
  Sex: Male
  Weight: 83.45 kg

DRUGS (4)
  1. DEXAMETHASONE. [Concomitant]
     Active Substance: DEXAMETHASONE
     Indication: PLASMA CELL MYELOMA
     Dosage: 40 MG, PER CHEMO REGIM
  2. VORINOSTAT [Concomitant]
     Active Substance: VORINOSTAT
     Indication: PLASMA CELL MYELOMA
     Dosage: 400 MG, PER CHEMO REGIM
  3. CARFILZOMIB [Suspect]
     Active Substance: CARFILZOMIB
     Indication: PLASMA CELL MYELOMA
     Dosage: 27 MG/M2, PER CHEMO REGIM
     Route: 042
     Dates: start: 20130924
  4. REVLIMID [Concomitant]
     Active Substance: LENALIDOMIDE
     Indication: PLASMA CELL MYELOMA
     Dosage: 10 MG, PER CHEMO REGIM

REACTIONS (2)
  - Streptococcal bacteraemia [Recovered/Resolved]
  - Endocarditis [Recovered/Resolved]

NARRATIVE: CASE EVENT DATE: 20150429
